FAERS Safety Report 9690819 (Version 2)
Quarter: 2013Q4

REPORT INFORMATION
  Report Type: Report from Study
  Country: CA (occurrence: CA)
  Receive Date: 20131115
  Receipt Date: 20131121
  Transmission Date: 20140711
  Serious: Yes (Hospitalization, Other)
  Sender: FDA-Public Use
  Company Number: CA-ROCHE-1303154

PATIENT
  Age: 68 Year
  Sex: Female
  Weight: 98 kg

DRUGS (12)
  1. RITUXAN [Suspect]
     Indication: IMMUNE THROMBOCYTOPENIC PURPURA
     Dosage: DATE OF MOST RECENT DOSE PRIOR TO SAE: 13/AUG/2010
     Route: 042
     Dates: start: 20100723, end: 20100813
  2. RITUXAN [Suspect]
     Route: 042
     Dates: start: 201008
  3. PREDNISONE [Concomitant]
  4. GLYBURIDE [Concomitant]
     Indication: DIABETES MELLITUS
     Route: 065
  5. SYNTHROID [Concomitant]
     Indication: HYPOTHYROIDISM
     Route: 048
  6. ALTACE [Concomitant]
  7. HYDROCHLOROTHIAZIDE [Concomitant]
  8. RAMIPRIL [Concomitant]
     Indication: BLOOD PRESSURE
     Route: 048
  9. FOSAMAX [Concomitant]
  10. VITAMIN C [Concomitant]
  11. ROSUVASTATIN [Concomitant]
     Indication: BLOOD CHOLESTEROL INCREASED
     Route: 048
  12. RENEDIL [Concomitant]
     Indication: BLOOD PRESSURE
     Route: 048

REACTIONS (5)
  - Pancreatitis acute [Unknown]
  - Escherichia bacteraemia [Unknown]
  - Platelet count decreased [Unknown]
  - Sleep apnoea syndrome [Unknown]
  - Autoimmune haemolytic anaemia [Unknown]
